FAERS Safety Report 25159415 (Version 2)
Quarter: 2025Q2

REPORT INFORMATION
  Report Type: Report from Study
  Country: CA (occurrence: CA)
  Receive Date: 20250404
  Receipt Date: 20250429
  Transmission Date: 20250717
  Serious: Yes (Other)
  Sender: JOHNSON AND JOHNSON
  Company Number: CA-JNJFOC-20240910573

PATIENT
  Age: 58 Year
  Sex: Female
  Weight: 64 kg

DRUGS (8)
  1. REMICADE [Suspect]
     Active Substance: INFLIXIMAB
     Indication: Crohn^s disease
     Route: 041
     Dates: start: 20190418
  2. REMICADE [Suspect]
     Active Substance: INFLIXIMAB
     Indication: Psoriasis
     Route: 041
     Dates: start: 20190418
  3. REMICADE [Suspect]
     Active Substance: INFLIXIMAB
     Route: 041
     Dates: start: 20240808
  4. REMICADE [Suspect]
     Active Substance: INFLIXIMAB
     Route: 041
  5. REMICADE [Suspect]
     Active Substance: INFLIXIMAB
     Route: 041
     Dates: start: 20190418
  6. REMICADE [Suspect]
     Active Substance: INFLIXIMAB
     Route: 041
     Dates: start: 20190418
  7. REMICADE [Suspect]
     Active Substance: INFLIXIMAB
     Route: 041
     Dates: start: 2019
  8. REMICADE [Suspect]
     Active Substance: INFLIXIMAB
     Route: 041

REACTIONS (9)
  - Nephrolithiasis [Recovered/Resolved]
  - Crohn^s disease [Not Recovered/Not Resolved]
  - Abdominal pain lower [Not Recovered/Not Resolved]
  - Blood magnesium decreased [Recovered/Resolved]
  - Cholelithiasis [Recovered/Resolved]
  - Fatigue [Recovered/Resolved]
  - Ligament sprain [Recovering/Resolving]
  - COVID-19 [Recovered/Resolved]
  - Incorrect dose administered [Unknown]

NARRATIVE: CASE EVENT DATE: 20240101
